FAERS Safety Report 5767626-4 (Version None)
Quarter: 2008Q2

REPORT INFORMATION
  Report Type: 
  Country: None (occurrence: None)
  Receive Date: 20080612
  Receipt Date: 20080602
  Transmission Date: 20081010
  Serious: Yes (Hospitalization)
  Sender: FDA-Public Use
  Company Number: FR-JNJFOC-20080600759

PATIENT
  Age: 75 Year
  Sex: Female

DRUGS (6)
  1. GALANTAMINE HYDROBROMIDE [Suspect]
     Indication: DEMENTIA ALZHEIMER'S TYPE
     Route: 065
  2. SOLIAN [Suspect]
     Indication: DRUG USE FOR UNKNOWN INDICATION
     Route: 065
  3. HALDOL [Suspect]
     Indication: ANXIETY
     Route: 065
  4. MEMANTINE HCL [Concomitant]
     Indication: DEMENTIA ALZHEIMER'S TYPE
     Route: 065
  5. LORAZEPAM [Concomitant]
     Indication: ANXIETY
     Route: 065
  6. VITAMIN B-12 [Concomitant]
     Indication: PERNICIOUS ANAEMIA
     Route: 065

REACTIONS (2)
  - LUNG INFECTION [None]
  - NEUROLEPTIC MALIGNANT SYNDROME [None]
